FAERS Safety Report 4534483-3 (Version None)
Quarter: 2004Q4

REPORT INFORMATION
  Report Type: 
  Country: None (occurrence: None)
  Receive Date: 20041221
  Receipt Date: 20041221
  Transmission Date: 20050328
  Serious: Yes (Other)
  Sender: FDA-Public Use
  Company Number: None

PATIENT
  Sex: Female

DRUGS (1)
  1. FUROSEMIDE [Suspect]
     Indication: HYPERTENSION
     Dosage: 20 MG PO 1 TAB DAILY
     Route: 048
     Dates: start: 20040101

REACTIONS (2)
  - OEDEMA [None]
  - PHARMACEUTICAL PRODUCT COMPLAINT [None]
